FAERS Safety Report 6391326-3 (Version None)
Quarter: 2009Q4

REPORT INFORMATION
  Report Type: 
  Country: None (occurrence: None)
  Receive Date: 20091007
  Receipt Date: 20090930
  Transmission Date: 20100525
  Serious: Yes (Other)
  Sender: FDA-Public Use
  Company Number: PHHY2009PL42122

PATIENT
  Age: 22 Year
  Sex: Female

DRUGS (2)
  1. METOPROLOL [Suspect]
     Dosage: TITRATED UP TO 200 MG DAILY
  2. METOPROLOL [Suspect]
     Dosage: 50 MG PER DAY

REACTIONS (4)
  - DRUG EXPOSURE DURING PREGNANCY [None]
  - IMPLANTABLE DEFIBRILLATOR INSERTION [None]
  - SYNCOPE [None]
  - VENTRICULAR TACHYCARDIA [None]
